FAERS Safety Report 7766640-7 (Version None)
Quarter: 2011Q3

REPORT INFORMATION
  Report Type: 
  Country: None (occurrence: None)
  Receive Date: 20110922
  Receipt Date: 20110918
  Transmission Date: 20111222
  Serious: No
  Sender: FDA-Public Use
  Company Number: US-TEVA-301594USA

PATIENT
  Sex: Female
  Weight: 51.302 kg

DRUGS (2)
  1. PLAN B ONE-STEP [Suspect]
     Indication: POST COITAL CONTRACEPTION
     Dosage: 1.5 MILLIGRAM;
     Route: 048
     Dates: start: 20110905, end: 20110905
  2. VITAMIN TAB [Concomitant]
     Indication: SUPPLEMENTATION THERAPY

REACTIONS (6)
  - PELVIC PAIN [None]
  - FATIGUE [None]
  - HOT FLUSH [None]
  - DIZZINESS [None]
  - PRURITUS [None]
  - NAUSEA [None]
